FAERS Safety Report 9132712 (Version 3)
Quarter: 2017Q4

REPORT INFORMATION
  Report Type: Spontaneous
  Country: US (occurrence: US)
  Receive Date: 20130128
  Receipt Date: 20171228
  Transmission Date: 20180321
  Serious: Yes (Hospitalization, Other)
  Sender: FDA-Public Use
  Company Number: US-MERCK-1301USA012158

PATIENT
  Sex: Female

DRUGS (5)
  1. ALENDRONATE SODIUM. [Suspect]
     Active Substance: ALENDRONATE SODIUM
     Dosage: 70 MG, QW
     Route: 048
     Dates: start: 20080221, end: 20100407
  2. ALENDRONATE SODIUM. [Suspect]
     Active Substance: ALENDRONATE SODIUM
     Dosage: 70 MG, QW
     Route: 048
     Dates: start: 2002, end: 201102
  3. FOSAMAX [Suspect]
     Active Substance: ALENDRONATE SODIUM
     Dosage: 70 MG, QW
     Route: 048
     Dates: start: 20040726, end: 20071123
  4. ALENDRONATE SODIUM. [Suspect]
     Active Substance: ALENDRONATE SODIUM
     Indication: OSTEOPOROSIS
     Dosage: 70 MG, QW
     Route: 048
     Dates: start: 20100915
  5. FOSAMAX [Suspect]
     Active Substance: ALENDRONATE SODIUM
     Indication: OSTEOPOROSIS
     Dosage: 70 MG, QW
     Route: 048
     Dates: start: 2002, end: 201102

REACTIONS (19)
  - Fall [Unknown]
  - Diabetes mellitus [Unknown]
  - Spinal compression fracture [Unknown]
  - Drug hypersensitivity [Unknown]
  - Pyrexia [Unknown]
  - Asthma [Unknown]
  - Hypertension [Unknown]
  - Glaucoma [Unknown]
  - Atrial fibrillation [Unknown]
  - Femur fracture [Unknown]
  - Cataract [Unknown]
  - Dyslipidaemia [Unknown]
  - Arthralgia [Unknown]
  - Chondrocalcinosis [Unknown]
  - Cardiac failure congestive [Unknown]
  - Anaemia [Unknown]
  - Bronchospasm [Unknown]
  - Aortic aneurysm [Unknown]
  - Arthritis [Unknown]

NARRATIVE: CASE EVENT DATE: 20110129
